FAERS Safety Report 24073455 (Version 3)
Quarter: 2024Q3

REPORT INFORMATION
  Report Type: Spontaneous
  Country: AT (occurrence: AT)
  Receive Date: 20240710
  Receipt Date: 20240809
  Transmission Date: 20241016
  Serious: No
  Sender: TOLMAR
  Company Number: AT-TOLMAR, INC.-24AT050411

PATIENT

DRUGS (2)
  1. ELIGARD [Suspect]
     Active Substance: LEUPROLIDE ACETATE
     Indication: Product used for unknown indication
     Dosage: 22.5 MILLIGRAM
  2. ELIGARD [Suspect]
     Active Substance: LEUPROLIDE ACETATE
     Dosage: 22.5 MILLIGRAM
     Dates: start: 20220408

REACTIONS (2)
  - Intercepted product preparation error [Unknown]
  - Device leakage [Unknown]
